FAERS Safety Report 5612993-5 (Version None)
Quarter: 2008Q1

REPORT INFORMATION
  Report Type: 
  Country: None (occurrence: None)
  Receive Date: 20080204
  Receipt Date: 20080128
  Transmission Date: 20080703
  Serious: Yes (Hospitalization)
  Sender: FDA-Public Use
  Company Number: JP-PFIZER INC-2007100712

PATIENT
  Age: 74 Year
  Sex: Female

DRUGS (4)
  1. AZULFIDINE EN-TABS [Suspect]
     Indication: RHEUMATOID ARTHRITIS
     Route: 048
  2. RHEUMATREX [Suspect]
     Route: 048
  3. PROGRAF [Suspect]
     Route: 048
  4. PREDNISOLONE [Concomitant]
     Route: 048

REACTIONS (2)
  - PANCYTOPENIA [None]
  - PULMONARY FIBROSIS [None]
